APPROVED DRUG PRODUCT: CALCITRIOL
Active Ingredient: CALCITRIOL
Strength: 0.5MCG
Dosage Form/Route: CAPSULE;ORAL
Application: A091174 | Product #002 | TE Code: AB
Applicant: BIONPHARMA INC
Approved: May 24, 2013 | RLD: No | RS: No | Type: RX